FAERS Safety Report 23109905 (Version 3)
Quarter: 2023Q4

REPORT INFORMATION
  Report Type: Report from Study
  Country: US (occurrence: US)
  Receive Date: 20231026
  Receipt Date: 20231122
  Transmission Date: 20240109
  Serious: Yes (Other)
  Sender: FDA-Public Use
  Company Number: US-ALNYLAM PHARMACEUTICALS, INC.-ALN-2023-005662

PATIENT

DRUGS (1)
  1. AMVUTTRA [Suspect]
     Active Substance: VUTRISIRAN
     Indication: Hereditary neuropathic amyloidosis
     Dosage: UNK
     Route: 065
     Dates: start: 20221118

REACTIONS (6)
  - Limb operation [Unknown]
  - Pain [Unknown]
  - Arthralgia [Unknown]
  - Chills [Unknown]
  - Hypoaesthesia [Unknown]
  - Paraesthesia [Unknown]
